FAERS Safety Report 17000494 (Version 1)
Quarter: 2019Q4

REPORT INFORMATION
  Report Type: Report from Study
  Country: NL (occurrence: NL)
  Receive Date: 20191106
  Receipt Date: 20191106
  Transmission Date: 20200122
  Serious: Yes (Death)
  Sender: FDA-Public Use
  Company Number: NL-PFIZER INC-2019473547

PATIENT

DRUGS (1)
  1. SUTENT [Suspect]
     Active Substance: SUNITINIB MALATE
     Indication: NEOPLASM
     Dosage: UNK, CYCLIC ((3+3 DESIGN, ONCE WEEKLY AND ESCALATING IN INCREMENTS OF 100 MG) 200MG, 300MG,400MG
     Route: 048

REACTIONS (1)
  - Rectal perforation [Fatal]
